FAERS Safety Report 8975941 (Version 1)
Quarter: 2012Q4

REPORT INFORMATION
  Report Type: Report from Study
  Country: AU (occurrence: AU)
  Receive Date: 20121219
  Receipt Date: 20121219
  Transmission Date: 20130627
  Serious: Yes (Other)
  Sender: FDA-Public Use
  Company Number: AU-ROCHE-1167183

PATIENT
  Age: 81 Year
  Sex: Female

DRUGS (4)
  1. TOCILIZUMAB [Suspect]
     Indication: RHEUMATOID ARTHRITIS
     Route: 042
     Dates: start: 20120416
  2. AMIODARONE [Concomitant]
     Indication: HEART RATE IRREGULAR
     Route: 048
  3. FOLIC ACID [Concomitant]
     Route: 048
  4. NEO-B12 [Concomitant]
     Route: 065

REACTIONS (3)
  - Fall [Unknown]
  - Skin lesion excision [Recovering/Resolving]
  - Limb injury [Recovering/Resolving]
